FAERS Safety Report 20744708 (Version 1)
Quarter: 2022Q2

REPORT INFORMATION
  Report Type: Spontaneous
  Country: US (occurrence: None)
  Receive Date: 20220422
  Receipt Date: 20220422
  Transmission Date: 20220721
  Serious: Yes (Hospitalization)
  Sender: FDA-Public Use
  Company Number: None

PATIENT
  Age: 70 Year
  Sex: Male
  Weight: 79.4 kg

DRUGS (12)
  1. CAPECITABINE [Suspect]
     Active Substance: CAPECITABINE
     Indication: Gallbladder cancer
     Dosage: FREQUENCY : TWICE A DAY;?
     Route: 048
     Dates: start: 20220404, end: 20220418
  2. XANAX [Concomitant]
     Active Substance: ALPRAZOLAM
     Dates: start: 20220407
  3. AMLODIPINE BESYLATE [Concomitant]
     Active Substance: AMLODIPINE BESYLATE
  4. LIPITOR [Concomitant]
     Active Substance: ATORVASTATIN CALCIUM
  5. Clonazepam 0.5 [Concomitant]
     Dates: start: 20220407
  6. Isosorbide 30 mg [Concomitant]
  7. METOPROLOL [Concomitant]
     Active Substance: METOPROLOL
  8. Remeron 15 mg [Concomitant]
  9. Nitroglycerine 0.4 [Concomitant]
  10. Zofran 8 mg [Concomitant]
  11. PROCHLORPERAZINE [Concomitant]
     Active Substance: PROCHLORPERAZINE
  12. Magnesium Gluconate 250 [Concomitant]

REACTIONS (1)
  - Microvascular coronary artery disease [None]

NARRATIVE: CASE EVENT DATE: 20220415
